FAERS Safety Report 12001639 (Version 1)
Quarter: 2016Q1

REPORT INFORMATION
  Report Type: Spontaneous
  Country: US (occurrence: US)
  Receive Date: 20160204
  Receipt Date: 20160204
  Transmission Date: 20160526
  Serious: No
  Sender: FDA-Public Use
  Company Number: US-PERRIGO-15US004526

PATIENT
  Age: 34 Year
  Sex: Female
  Weight: 102.4 kg

DRUGS (2)
  1. FEXOFENADINE HYDROCHLORIDE. [Concomitant]
     Active Substance: FEXOFENADINE HYDROCHLORIDE
     Indication: DIZZINESS
     Dosage: 180 MG, SINGLE
     Route: 048
     Dates: start: 20150427, end: 20150427
  2. IBUPROFEN. [Suspect]
     Active Substance: IBUPROFEN
     Indication: BACK PAIN
     Dosage: UNKNOWN, SINGLE
     Route: 048
     Dates: start: 20150427, end: 20150427

REACTIONS (2)
  - Expired product administered [Recovered/Resolved]
  - No adverse event [Unknown]

NARRATIVE: CASE EVENT DATE: 20150427
